FAERS Safety Report 7594863-9 (Version None)
Quarter: 2011Q3

REPORT INFORMATION
  Report Type: 
  Country: None (occurrence: None)
  Receive Date: 20110707
  Receipt Date: 20110706
  Transmission Date: 20111222
  Serious: Yes (Hospitalization)
  Sender: FDA-Public Use
  Company Number: US-BRISTOL-MYERS SQUIBB COMPANY-15721756

PATIENT
  Age: 75 Year
  Sex: Female
  Weight: 53 kg

DRUGS (7)
  1. LEVAQUIN [Concomitant]
     Dates: start: 20110417, end: 20110426
  2. TRICOR [Concomitant]
     Dates: start: 20071205
  3. ASPIRIN [Concomitant]
     Dates: start: 20071205
  4. CISPLATIN [Suspect]
     Indication: NON-SMALL CELL LUNG CANCER
     Dosage: EVERY 28 DAYS
     Route: 042
     Dates: start: 20110413, end: 20110502
  5. LISINOPRIL AND HYDROCHLOROTHIAZIDE [Concomitant]
     Dates: start: 20110312
  6. PROCHLORPERAZINE MALEATE [Concomitant]
     Dates: start: 20110217
  7. HYDROCODONE BITARTRATE AND ACETAMINOPHEN [Concomitant]
     Dates: start: 20110305

REACTIONS (2)
  - RENAL FAILURE ACUTE [None]
  - CARDIAC FAILURE CONGESTIVE [None]
